FAERS Safety Report 6213113-9 (Version None)
Quarter: 2009Q2

REPORT INFORMATION
  Report Type: 
  Country: None (occurrence: None)
  Receive Date: 20090603
  Receipt Date: 20090527
  Transmission Date: 20091009
  Serious: Yes (Hospitalization)
  Sender: FDA-Public Use
  Company Number: B0575290A

PATIENT
  Sex: Male

DRUGS (14)
  1. LAMICTAL [Suspect]
     Indication: PARTIAL SEIZURES
     Route: 048
     Dates: start: 20090512
  2. UNKNOWN DRUG [Concomitant]
     Indication: PARTIAL SEIZURES
     Route: 048
  3. GABAPENTIN [Concomitant]
     Indication: PARTIAL SEIZURES
     Dosage: 1800MG PER DAY
     Route: 048
  4. ALEVIATIN [Concomitant]
     Indication: PARTIAL SEIZURES
     Route: 065
  5. TOPIRAMATE [Concomitant]
     Indication: PARTIAL SEIZURES
     Dosage: 100MG PER DAY
     Route: 048
     Dates: start: 20090507, end: 20090517
  6. LENDORMIN [Concomitant]
     Indication: INSOMNIA
     Route: 048
  7. GABAPENTIN [Concomitant]
     Route: 048
     Dates: start: 20090507, end: 20090511
  8. GABAPENTIN [Concomitant]
     Route: 048
     Dates: start: 20090512, end: 20090517
  9. GABAPENTIN [Concomitant]
     Route: 048
     Dates: start: 20090518, end: 20090519
  10. GABAPENTIN [Concomitant]
     Route: 048
     Dates: start: 20090520, end: 20090522
  11. GABAPENTIN [Concomitant]
     Route: 048
     Dates: start: 20090523, end: 20090524
  12. GABAPENTIN [Concomitant]
     Route: 048
     Dates: start: 20090525, end: 20090526
  13. ALEVIATIN [Concomitant]
     Route: 048
     Dates: start: 20090518
  14. TOPIRAMATE [Concomitant]
     Route: 048
     Dates: start: 20090518

REACTIONS (5)
  - ASTHENIA [None]
  - DYSSTASIA [None]
  - HYPOKALAEMIA [None]
  - MUSCULAR WEAKNESS [None]
  - MYALGIA [None]
